FAERS Safety Report 24023413 (Version 1)
Quarter: 2024Q2

REPORT INFORMATION
  Report Type: Spontaneous
  Country: FR (occurrence: FR)
  Receive Date: 20240627
  Receipt Date: 20240627
  Transmission Date: 20240716
  Serious: No
  Sender: FDA-Public Use
  Company Number: None

PATIENT
  Age: 60 Year
  Sex: Female
  Weight: 64.0 kg

DRUGS (3)
  1. PHESGO [Suspect]
     Active Substance: HYALURONIDASE-ZZXF\PERTUZUMAB\TRASTUZUMAB
     Indication: HER2 positive breast cancer
     Dosage: PHESGO 600 MG/600 MG, SOLUTION FOR INJECTION
     Route: 065
     Dates: start: 20220328
  2. TRAZIMERA (FRANCE) [Concomitant]
     Indication: HER2 positive breast cancer
     Dosage: 420 MG, POWDER FOR CONCENTRATE FOR SOLUTION FOR INFUSION
     Dates: start: 20201123, end: 20230310
  3. PERJETA [Concomitant]
     Active Substance: PERTUZUMAB
     Indication: HER2 positive breast cancer
     Dates: start: 20201123, end: 20230310

REACTIONS (1)
  - Muscle spasms [Not Recovered/Not Resolved]

NARRATIVE: CASE EVENT DATE: 20240401
